FAERS Safety Report 7825371-5 (Version None)
Quarter: 2011Q4

REPORT INFORMATION
  Report Type: 
  Country: None (occurrence: None)
  Receive Date: 20111011
  Receipt Date: 20110927
  Transmission Date: 20120403
  Serious: Yes (Death, Life-Threatening, Other)
  Sender: FDA-Public Use
  Company Number: THYM-1001219

PATIENT
  Age: 20 Year
  Sex: Male
  Weight: 55 kg

DRUGS (23)
  1. CEFOZOPRAN HYDROCHLORIDE (CEFOZOPRAN HYDROCHLORIDE) [Concomitant]
  2. METHYLPREDNISOLONE [Concomitant]
  3. MINOCYCLINE HYDROCHLORIDE [Concomitant]
  4. THYMOGLOBULIN [Suspect]
     Dosage: 50 MG, ONCE, INTRAVENOUS
     Route: 042
     Dates: start: 20090925, end: 20090925
  5. THYMOGLOBULIN [Suspect]
     Dosage: 50 MG, ONCE, INTRAVENOUS
     Route: 042
     Dates: start: 20090825, end: 20090825
  6. THYMOGLOBULIN [Suspect]
     Dosage: 50 MG, ONCE, INTRAVENOUS
     Route: 042
     Dates: start: 20090909, end: 20090909
  7. IMIPENEM (IMIPENEM) [Concomitant]
  8. THYMOGLOBULIN [Suspect]
     Indication: ACUTE GRAFT VERSUS HOST DISEASE
     Dosage: 50 MG, ONCE, INTRAVENOUS
     Route: 042
     Dates: start: 20090817, end: 20090817
  9. TACROLIMUS [Concomitant]
  10. MICAFUNGIN SODIUM (MICAFUNGIN SODIUM) [Concomitant]
  11. CIPROFLOXACIN (CIPROFLOXACIN LACTATE) [Concomitant]
  12. FOSCARNET SODIUM [Concomitant]
  13. THYMOGLOBULIN [Suspect]
     Dosage: 50 MG, ONCE, UNK
     Dates: start: 20091225, end: 20091225
  14. THYMOGLOBULIN [Suspect]
     Dosage: 50 MG, ONCE, UNK
     Dates: start: 20100211, end: 20100211
  15. THYMOGLOBULIN [Suspect]
     Dosage: 50 MG, ONCE, UNK
     Dates: start: 20100226, end: 20100226
  16. THYMOGLOBULIN [Suspect]
     Dosage: 50 MG, ONCE, UNK
     Dates: start: 20091218, end: 20091218
  17. THYMOGLOBULIN [Suspect]
     Dosage: 50 MG, ONCE, UNK
     Dates: start: 20100114, end: 20100114
  18. THYMOGLOBULIN [Suspect]
     Dosage: 50 MG, ONCE, UNK
     Dates: start: 20100225, end: 20100225
  19. THYMOGLOBULIN [Suspect]
     Dosage: 50 MG, ONCE, UNK
     Dates: start: 20091206, end: 20091206
  20. THYMOGLOBULIN [Suspect]
     Dosage: 50 MG, ONCE, UNK
     Dates: start: 20091214, end: 20091214
  21. LINEZOLID [Concomitant]
  22. MEROPENEM [Concomitant]
  23. MYCOPHENOLATE MOFETIL [Concomitant]

REACTIONS (3)
  - GASTROINTESTINAL HAEMORRHAGE [None]
  - SYSTEMIC MYCOSIS [None]
  - BRONCHOPULMONARY ASPERGILLOSIS [None]
